FAERS Safety Report 6240764-8 (Version None)
Quarter: 2009Q2

REPORT INFORMATION
  Report Type: 
  Country: None (occurrence: None)
  Receive Date: 20090623
  Receipt Date: 20090610
  Transmission Date: 20091009
  Serious: Yes (Other)
  Sender: FDA-Public Use
  Company Number: JP-PFIZER INC-2009228914

PATIENT
  Age: 36 Year

DRUGS (1)
  1. CHAMPIX [Suspect]
     Indication: SMOKING CESSATION THERAPY
     Dosage: UNK
     Route: 048
     Dates: start: 20090111, end: 20090223

REACTIONS (3)
  - ALOPECIA [None]
  - ERYTHEMA MULTIFORME [None]
  - NAUSEA [None]
